FAERS Safety Report 20344173 (Version 1)
Quarter: 2022Q1

REPORT INFORMATION
  Report Type: Report from Study
  Country: US (occurrence: US)
  Receive Date: 20220118
  Receipt Date: 20220118
  Transmission Date: 20220423
  Serious: No
  Sender: FDA-Public Use
  Company Number: US-Ipsen Biopharmaceuticals, Inc.-2022-00714

PATIENT
  Sex: Male

DRUGS (1)
  1. SOMATULINE DEPOT [Suspect]
     Active Substance: LANREOTIDE ACETATE
     Indication: Carcinoid tumour
     Dosage: 120 MG, Q 28 DAYS, SUBCUTANEOUS
     Route: 058
     Dates: start: 201912

REACTIONS (2)
  - Presyncope [Recovering/Resolving]
  - Blood glucose decreased [Recovering/Resolving]
